FAERS Safety Report 9829091 (Version 2)
Quarter: 2014Q1

REPORT INFORMATION
  Report Type: Spontaneous
  Country: IT (occurrence: IT)
  Receive Date: 20140119
  Receipt Date: 20140123
  Transmission Date: 20141002
  Serious: Yes (Other)
  Sender: FDA-Public Use
  Company Number: IT-MERCK-1401ITA006415

PATIENT
  Age: 71 Year
  Sex: Male

DRUGS (3)
  1. VICTRELIS [Suspect]
     Dosage: UNK
     Route: 048
     Dates: start: 20131111
  2. RIBAVIRIN [Suspect]
     Dosage: UNK
     Route: 048
  3. PEGINTERFERON ALFA-2B [Suspect]
     Dosage: UNK

REACTIONS (2)
  - Hepatic cancer [Not Recovered/Not Resolved]
  - Nodule [Unknown]
